FAERS Safety Report 5123412-X (Version None)
Quarter: 2006Q4

REPORT INFORMATION
  Report Type: 
  Country: None (occurrence: None)
  Receive Date: 20061005
  Receipt Date: 20060921
  Transmission Date: 20070319
  Serious: Yes (Hospitalization, Other)
  Sender: FDA-Public Use
  Company Number: JP200607000236

PATIENT
  Age: 44 Year
  Sex: Female
  Weight: 61 kg

DRUGS (2)
  1. OLANZAPINE [Suspect]
     Indication: SCHIZOPHRENIA
     Dosage: 10 MG, 2/D, ORAL
     Route: 048
  2. DORAL [Concomitant]

REACTIONS (4)
  - APPENDICITIS [None]
  - PERITONITIS [None]
  - PLATELET COUNT DECREASED [None]
  - SEPSIS [None]
